FAERS Safety Report 4334559-X (Version None)
Quarter: 2004Q2

REPORT INFORMATION
  Report Type: 
  Country: None (occurrence: None)
  Receive Date: 20040407
  Receipt Date: 20040116
  Transmission Date: 20050107
  Serious: Yes (Life-Threatening)
  Sender: FDA-Public Use
  Company Number: FR-ROCHE-356151

PATIENT
  Age: 75 Year
  Sex: Female

DRUGS (6)
  1. NAPROSYN [Suspect]
     Indication: DRUG USE FOR UNKNOWN INDICATION
     Route: 048
  2. ALDACTAZINE [Suspect]
     Route: 065
  3. CORVASAL (MOLSIDOMINE) [Concomitant]
     Route: 048
  4. SELOKEN [Concomitant]
     Route: 048
  5. TRINIPATCH [Concomitant]
     Route: 048
  6. ASPEGIC 325 [Concomitant]
     Route: 048

REACTIONS (7)
  - ANOREXIA [None]
  - ASTHENIA [None]
  - BLOOD CREATININE INCREASED [None]
  - ELECTROCARDIOGRAM ABNORMAL [None]
  - FALL [None]
  - HYPERKALAEMIA [None]
  - METABOLIC ACIDOSIS [None]
